FAERS Safety Report 16325513 (Version 1)
Quarter: 2019Q2

REPORT INFORMATION
  Report Type: Spontaneous
  Country: CO (occurrence: CO)
  Receive Date: 20190517
  Receipt Date: 20190517
  Transmission Date: 20190711
  Serious: Yes (Hospitalization)
  Sender: FDA-Public Use
  Company Number: CO-PFIZER INC-2019207038

PATIENT
  Age: 32 Year
  Sex: Female

DRUGS (1)
  1. REAMPLA [Suspect]
     Active Substance: PALBOCICLIB
     Indication: BREAST CANCER METASTATIC
     Dosage: 125 MG, UNK
     Route: 048
     Dates: start: 201903

REACTIONS (8)
  - Immune system disorder [Unknown]
  - Pneumonia [Unknown]
  - Anaemia [Unknown]
  - Acute sinusitis [Unknown]
  - Cough [Unknown]
  - Ear infection [Unknown]
  - Pyrexia [Unknown]
  - Malaise [Unknown]
